FAERS Safety Report 19283424 (Version 1)
Quarter: 2021Q2

REPORT INFORMATION
  Report Type: Spontaneous
  Country: US (occurrence: US)
  Receive Date: 20210520
  Receipt Date: 20210520
  Transmission Date: 20210717
  Serious: No
  Sender: FDA-Public Use
  Company Number: US-BEH-2021131822

PATIENT
  Sex: Female

DRUGS (2)
  1. HIZENTRA [Suspect]
     Active Substance: HUMAN IMMUNOGLOBULIN G
     Indication: MYASTHENIA GRAVIS
     Dosage: 8 GRAM, QW
     Route: 058
     Dates: start: 202101
  2. LMX 4 [Concomitant]
     Indication: PREMEDICATION
     Route: 061

REACTIONS (3)
  - Off label use [Unknown]
  - Injection site irritation [Unknown]
  - No adverse event [Unknown]
